FAERS Safety Report 15350689 (Version 2)
Quarter: 2018Q4

REPORT INFORMATION
  Report Type: Spontaneous
  Country: BE (occurrence: BE)
  Receive Date: 20180905
  Receipt Date: 20181023
  Transmission Date: 20190204
  Serious: Yes (Death, Hospitalization, Other)
  Sender: FDA-Public Use
  Company Number: BE-BRISTOL-MYERS SQUIBB COMPANY-BMS-2018-082133

PATIENT
  Age: 65 Year
  Sex: Female
  Weight: 63.1 kg

DRUGS (4)
  1. DUOVENT [Concomitant]
     Active Substance: FENOTEROL HYDROBROMIDE
     Indication: DYSPNOEA
     Dosage: 1 DF, UNK
     Route: 050
     Dates: start: 20180420, end: 20180809
  2. DAFALGAN [Concomitant]
     Active Substance: ACETAMINOPHEN
     Indication: PAIN
     Dosage: 1 DF, UNK
     Route: 048
     Dates: start: 20180801, end: 20180810
  3. NIVOLUMAB [Suspect]
     Active Substance: NIVOLUMAB
     Indication: SMALL CELL LUNG CANCER
     Dosage: 3 MG/KG, Q3WK
     Route: 042
     Dates: start: 20180723, end: 20180723
  4. CONTRAMAL [Concomitant]
     Active Substance: TRAMADOL HYDROCHLORIDE
     Indication: PAIN
     Dosage: 50 MG, UNK
     Route: 050
     Dates: start: 20180629, end: 20180803

REACTIONS (5)
  - Malignant neoplasm progression [Fatal]
  - Liver function test increased [Unknown]
  - Neurone-specific enolase increased [Unknown]
  - General physical health deterioration [Fatal]
  - Product use in unapproved indication [Unknown]

NARRATIVE: CASE EVENT DATE: 20180801
